FAERS Safety Report 8002925-7 (Version None)
Quarter: 2011Q4

REPORT INFORMATION
  Report Type: 
  Country: None (occurrence: None)
  Receive Date: 20111222
  Receipt Date: 20110328
  Transmission Date: 20120403
  Serious: No
  Sender: FDA-Public Use
  Company Number: US-GLAXOSMITHKLINE-A0920315A

PATIENT
  Age: 68 Year
  Sex: Male

DRUGS (7)
  1. METFORMIN HCL [Concomitant]
  2. PRAVASTATIN [Concomitant]
  3. LUMIGAN [Concomitant]
  4. AVODART [Suspect]
     Indication: BENIGN PROSTATIC HYPERPLASIA
     Dosage: .5MG PER DAY
     Route: 048
  5. DIOVAN HCT [Concomitant]
  6. VITAMIN TAB [Concomitant]
  7. NEXIUM [Concomitant]

REACTIONS (5)
  - ILL-DEFINED DISORDER [None]
  - DRUG INEFFECTIVE [None]
  - POLLAKIURIA [None]
  - LOCAL SWELLING [None]
  - PRURITUS [None]
